FAERS Safety Report 23457246 (Version 1)
Quarter: 2024Q1

REPORT INFORMATION
  Report Type: Report from Study
  Country: SA (occurrence: SA)
  Receive Date: 20240130
  Receipt Date: 20240130
  Transmission Date: 20240409
  Serious: Yes (Other)
  Sender: FDA-Public Use
  Company Number: SA-GSK-SA2024EME011171

PATIENT

DRUGS (1)
  1. MEPOLIZUMAB [Suspect]
     Active Substance: MEPOLIZUMAB
     Indication: Asthma
     Dosage: 100 MG, MO
     Dates: start: 20220713

REACTIONS (3)
  - Parathyroid tumour [Unknown]
  - Blood calcium increased [Unknown]
  - Hyperplasia [Unknown]
